FAERS Safety Report 7578158-5 (Version None)
Quarter: 2011Q2

REPORT INFORMATION
  Report Type: 
  Country: None (occurrence: None)
  Receive Date: 20110628
  Receipt Date: 20110624
  Transmission Date: 20111010
  Serious: Yes (Other)
  Sender: FDA-Public Use
  Company Number: A0923792A

PATIENT
  Sex: Male

DRUGS (1)
  1. AVANDIA [Suspect]
     Dosage: 4MG PER DAY
     Route: 048
     Dates: start: 20091218, end: 20100501

REACTIONS (3)
  - MYOCARDIAL ISCHAEMIA [None]
  - CORONARY ARTERY STENOSIS [None]
  - ANGINA UNSTABLE [None]
